FAERS Safety Report 10079425 (Version 3)
Quarter: 2014Q2

REPORT INFORMATION
  Report Type: Report from Study
  Country: US (occurrence: US)
  Receive Date: 20140415
  Receipt Date: 20140523
  Transmission Date: 20141212
  Serious: Yes (Hospitalization, Other)
  Sender: FDA-Public Use
  Company Number: US-ACTELION-A-NJ2014-97112

PATIENT
  Age: 11 Year
  Sex: Male

DRUGS (1)
  1. ZAVESCA [Suspect]
     Indication: NIEMANN-PICK DISEASE
     Dosage: 200 MG, BID
     Route: 048
     Dates: start: 20120507

REACTIONS (3)
  - Convulsion [Recovering/Resolving]
  - Head injury [Unknown]
  - Fall [Recovering/Resolving]
